FAERS Safety Report 22210647 (Version 2)
Quarter: 2023Q2

REPORT INFORMATION
  Report Type: Spontaneous
  Country: US (occurrence: US)
  Receive Date: 20230414
  Receipt Date: 20230504
  Transmission Date: 20230722
  Serious: No
  Sender: FDA-Public Use
  Company Number: US-BRISTOL-MYERS SQUIBB COMPANY-2023-052214

PATIENT
  Age: 57 Year
  Sex: Female

DRUGS (1)
  1. POMALYST [Suspect]
     Active Substance: POMALIDOMIDE
     Indication: Monoclonal gammopathy
     Dosage: TAKE 1 CAPSULE BY MOUTH WHOLE WITH WATER AT SAME TIME DAILY ON DAYS 1-21, THEN 7 DAYS OFF. REPEAT CY
     Route: 048
     Dates: start: 20221205

REACTIONS (1)
  - Off label use [Unknown]
